FAERS Safety Report 23788384 (Version 1)
Quarter: 2024Q2

REPORT INFORMATION
  Report Type: Report from Study
  Country: US (occurrence: US)
  Receive Date: 20240426
  Receipt Date: 20240426
  Transmission Date: 20240716
  Serious: Yes (Other)
  Sender: FDA-Public Use
  Company Number: US-GILEAD-2024-0669490

PATIENT
  Sex: Male

DRUGS (1)
  1. AZTREONAM LYSINE [Suspect]
     Active Substance: AZTREONAM LYSINE
     Indication: Cystic fibrosis
     Dosage: 75 MG, TID, VIA ALTERA NEBULIZER THREE TIMES DAILY FOR 28 DAYS, EVERY OTHER MONTH
     Route: 055

REACTIONS (2)
  - Cystic fibrosis [Unknown]
  - Infection [Unknown]
